FAERS Safety Report 4293169-3 (Version None)
Quarter: 2004Q1

REPORT INFORMATION
  Report Type: 
  Country: None (occurrence: None)
  Receive Date: 20040212
  Receipt Date: 20030617
  Transmission Date: 20041129
  Serious: No
  Sender: FDA-Public Use
  Company Number: US-GLAXOSMITHKLINE-A0412950A

PATIENT
  Age: 59 Year
  Sex: Female

DRUGS (6)
  1. PAXIL [Suspect]
     Indication: DEPRESSION
     Route: 048
     Dates: start: 19980101
  2. VIOXX [Concomitant]
  3. MICRONASE [Concomitant]
  4. CARDIZEM CD [Concomitant]
  5. CLONOPIN [Concomitant]
  6. PRILOSEC [Concomitant]

REACTIONS (2)
  - ALOPECIA [None]
  - HYPERHIDROSIS [None]
